FAERS Safety Report 12217361 (Version 1)
Quarter: 2016Q1

REPORT INFORMATION
  Report Type: Spontaneous
  Country: US (occurrence: None)
  Receive Date: 20160328
  Receipt Date: 20160328
  Transmission Date: 20160526
  Serious: No
  Sender: FDA-Public Use
  Company Number: None

PATIENT
  Age: 69 Year
  Sex: Female

DRUGS (1)
  1. PENICILLIN G POT IN DEXTROSE UNKNOWN BAXTER HEALTHCARE CORP [Suspect]
     Active Substance: PENICILLIN G POTASSIUM
     Indication: NEUROSYPHILIS
     Dosage: 24 MILLION UNITS CONTINUOUS IV
     Route: 042
     Dates: start: 20160322, end: 20160322

REACTIONS (4)
  - Cold sweat [None]
  - Infusion related reaction [None]
  - Hypotension [None]
  - Dizziness [None]

NARRATIVE: CASE EVENT DATE: 20160322
